FAERS Safety Report 7608779-2 (Version None)
Quarter: 2011Q3

REPORT INFORMATION
  Report Type: 
  Country: None (occurrence: None)
  Receive Date: 20110713
  Receipt Date: 20110713
  Transmission Date: 20111222
  Serious: No
  Sender: FDA-Public Use
  Company Number: None

PATIENT
  Sex: Female
  Weight: 68.0396 kg

DRUGS (1)
  1. ALENDRONATE SODIUM [Suspect]
     Indication: OSTEOPOROSIS
     Dosage: 70MG TAB  1 TAB - EVERY SATURDAY ORAL
     Route: 048
     Dates: start: 20030101

REACTIONS (6)
  - SWELLING FACE [None]
  - VIITH NERVE PARALYSIS [None]
  - ERYTHEMA [None]
  - CEREBROVASCULAR ACCIDENT [None]
  - LIP SWELLING [None]
  - PRODUCT SUBSTITUTION ISSUE [None]
